FAERS Safety Report 9491002 (Version 1)
Quarter: 2013Q3

REPORT INFORMATION
  Report Type: Spontaneous
  Country: US (occurrence: US)
  Receive Date: 20130830
  Receipt Date: 20130830
  Transmission Date: 20140515
  Serious: No
  Sender: FDA-Public Use
  Company Number: US-PFIZER INC-2013248679

PATIENT
  Sex: 0

DRUGS (4)
  1. DILANTIN [Suspect]
     Dosage: 300 MG, 1X/DAY (PER DAY)
  2. DILANTIN [Suspect]
     Dosage: 200 MG, 1X/DAY (PER DAY)
  3. VIMPAT [Suspect]
     Dosage: 100 MG, 1X/DAY (DAILY)
  4. DEPAKOTE [Suspect]
     Dosage: UNK

REACTIONS (2)
  - Hiccups [Unknown]
  - Impaired driving ability [Unknown]
